FAERS Safety Report 8095573-4 (Version None)
Quarter: 2011Q4

REPORT INFORMATION
  Report Type: 
  Country: None (occurrence: None)
  Receive Date: 20111222
  Receipt Date: 20111003
  Transmission Date: 20120403
  Serious: Yes (Death, Other)
  Sender: FDA-Public Use
  Company Number: UTC-010769

PATIENT
  Age: 85 Year
  Sex: Male
  Weight: 85 kg

DRUGS (3)
  1. TYVASO [Suspect]
     Indication: PULMONARY ARTERIAL HYPERTENSION
     Dosage: 18-54 MICROGRAMS (4 IN 1 D) INHALATION
     Route: 055
     Dates: start: 20110429
  2. COUMADIN [Concomitant]
  3. REVATIO [Concomitant]

REACTIONS (2)
  - CHRONIC OBSTRUCTIVE PULMONARY DISEASE [None]
  - CARDIAC FAILURE CONGESTIVE [None]
